FAERS Safety Report 8134498-2 (Version None)
Quarter: 2012Q1

REPORT INFORMATION
  Report Type: 
  Country: None (occurrence: None)
  Receive Date: 20120214
  Receipt Date: 20120131
  Transmission Date: 20120608
  Serious: Yes (Death)
  Sender: FDA-Public Use
  Company Number: ES-AMGEN-ESPSP2012006984

PATIENT
  Age: 77 Year
  Sex: Male
  Weight: 90 kg

DRUGS (2)
  1. METHOTREXATE [Concomitant]
     Indication: PSORIASIS
     Dosage: UNK
     Dates: start: 20030114
  2. ETANERCEPT [Suspect]
     Indication: PSORIASIS
     Dosage: UNK
     Dates: start: 20050916, end: 20070620

REACTIONS (2)
  - DEATH [None]
  - IRON DEFICIENCY ANAEMIA [None]
